FAERS Safety Report 22632909 (Version 1)
Quarter: 2023Q2

REPORT INFORMATION
  Report Type: Report from Study
  Country: US (occurrence: US)
  Receive Date: 20230623
  Receipt Date: 20230623
  Transmission Date: 20230721
  Serious: Yes (Other)
  Sender: FDA-Public Use
  Company Number: US-ABBVIE-5300673

PATIENT
  Sex: Female

DRUGS (1)
  1. HUMIRA [Suspect]
     Active Substance: ADALIMUMAB
     Indication: Psoriasis
     Dosage: FORM OF STRENGTH 40 MG?CITRATE FREE
     Route: 058
     Dates: start: 20220106

REACTIONS (2)
  - Meniscus injury [Recovered/Resolved]
  - Cartilage injury [Recovered/Resolved]
